FAERS Safety Report 22830711 (Version 3)
Quarter: 2023Q4

REPORT INFORMATION
  Report Type: Spontaneous
  Country: CA (occurrence: CA)
  Receive Date: 20230817
  Receipt Date: 20231229
  Transmission Date: 20240110
  Serious: Yes (Hospitalization, Other)
  Sender: FDA-Public Use
  Company Number: CA-AUROBINDO-AUR-APL-2023-052626

PATIENT
  Age: 29 Year
  Sex: Male

DRUGS (27)
  1. ARIPIPRAZOLE [Suspect]
     Active Substance: ARIPIPRAZOLE
     Indication: Psychotic disorder
     Dosage: 400 MILLIGRAM 1 EVERY 4 WEEKS
     Route: 048
  2. ARIPIPRAZOLE [Suspect]
     Active Substance: ARIPIPRAZOLE
     Indication: Substance use disorder
  3. ARIPIPRAZOLE [Suspect]
     Active Substance: ARIPIPRAZOLE
     Indication: Schizophrenia
  4. CLOZAPINE [Suspect]
     Active Substance: CLOZAPINE
     Indication: Psychotic disorder
     Dosage: 200 MILLIGRAM, ONCE A DAY
     Route: 065
  5. CLOZAPINE [Suspect]
     Active Substance: CLOZAPINE
     Dosage: 450 MILLIGRAM, ONCE A DAY
     Route: 065
  6. CLOZAPINE [Suspect]
     Active Substance: CLOZAPINE
     Dosage: 400 MILLIGRAM, ONCE A DAY
     Route: 065
  7. CLOZAPINE [Suspect]
     Active Substance: CLOZAPINE
     Dosage: UNK
     Route: 065
  8. CLOZAPINE [Suspect]
     Active Substance: CLOZAPINE
     Indication: Psychotic disorder
     Dosage: UNK
     Route: 065
  9. LURASIDONE [Suspect]
     Active Substance: LURASIDONE
     Indication: Psychotic disorder
     Dosage: 160 MILLIGRAM
     Route: 065
  10. LURASIDONE [Suspect]
     Active Substance: LURASIDONE
     Indication: Substance use disorder
     Dosage: 80 MILLIGRAM
     Route: 065
  11. LURASIDONE [Suspect]
     Active Substance: LURASIDONE
     Indication: Schizophrenia
     Dosage: 100 MILLIGRAM, ONCE A DAY
     Route: 048
  12. OLANZAPINE [Suspect]
     Active Substance: OLANZAPINE
     Indication: Psychotic disorder
     Dosage: 20 MILLIGRAM, ONCE A DAY
     Route: 065
  13. DIAZEPAM [Suspect]
     Active Substance: DIAZEPAM
     Indication: Akathisia
     Dosage: UNK
     Route: 065
  14. DIAZEPAM [Suspect]
     Active Substance: DIAZEPAM
     Indication: Agitation
  15. PALIPERIDONE [Suspect]
     Active Substance: PALIPERIDONE
     Indication: Psychotic disorder
     Dosage: 150 MILLIGRAM
     Route: 065
  16. PALIPERIDONE [Suspect]
     Active Substance: PALIPERIDONE
     Indication: Substance use disorder
  17. PALIPERIDONE [Suspect]
     Active Substance: PALIPERIDONE
     Indication: Schizophrenia
  18. PENTOXIFYLLINE [Suspect]
     Active Substance: PENTOXIFYLLINE
     Indication: Thromboangiitis obliterans
     Dosage: 400 MILLIGRAM, TWO TIMES A DAY
     Route: 065
  19. RISPERIDONE [Suspect]
     Active Substance: RISPERIDONE
     Indication: Psychotic disorder
     Dosage: UNK
     Route: 048
  20. ZUCLOPENTHIXOL DECANOATE [Suspect]
     Active Substance: ZUCLOPENTHIXOL DECANOATE
     Indication: Psychotic disorder
     Dosage: UNK
     Route: 030
  21. ZUCLOPENTHIXOL DECANOATE [Suspect]
     Active Substance: ZUCLOPENTHIXOL DECANOATE
     Indication: Substance use disorder
     Dosage: 200 MILLIGRAM
     Route: 065
  22. ZUCLOPENTHIXOL DECANOATE [Suspect]
     Active Substance: ZUCLOPENTHIXOL DECANOATE
     Indication: Schizophrenia
     Dosage: 150 MILLIGRAM 1 EVERY 2 WEEKS
     Route: 065
  23. CLOPIDOGREL [Concomitant]
     Active Substance: CLOPIDOGREL BISULFATE
     Indication: Antiplatelet therapy
     Dosage: 75 MILLIGRAM, ONCE A DAY
     Route: 065
  24. OMEPRAZOLE [Concomitant]
     Active Substance: OMEPRAZOLE
     Indication: Product used for unknown indication
     Dosage: 20 MILLIGRAM, ONCE A DAY
     Route: 065
  25. ROSUVASTATIN [Concomitant]
     Active Substance: ROSUVASTATIN
     Indication: Product used for unknown indication
     Dosage: 10 MILLIGRAM, ONCE A DAY
     Route: 065
  26. ZUCLOPENTHIXOL DECANOATE [Concomitant]
     Active Substance: ZUCLOPENTHIXOL DECANOATE
     Indication: Psychotic disorder
     Dosage: UNK
     Route: 030
  27. PENTOXIFYLLINE [Concomitant]
     Active Substance: PENTOXIFYLLINE
     Indication: Thromboangiitis obliterans
     Dosage: 400 MILLIGRAM, TWO TIMES A DAY
     Route: 065

REACTIONS (7)
  - Arrhythmia [Unknown]
  - Sedation complication [Unknown]
  - Drug ineffective [Unknown]
  - Intentional product misuse [Unknown]
  - Akathisia [Unknown]
  - Agitation [Unknown]
  - Extrapyramidal disorder [Unknown]
